FAERS Safety Report 7351191-4 (Version None)
Quarter: 2011Q1

REPORT INFORMATION
  Report Type: 
  Country: None (occurrence: None)
  Receive Date: 20110314
  Receipt Date: 20110304
  Transmission Date: 20110831
  Serious: Yes (Death, Hospitalization, Other)
  Sender: FDA-Public Use
  Company Number: US-CELGENEUS-163-21880-11030816

PATIENT
  Sex: Male
  Weight: 62.652 kg

DRUGS (16)
  1. REVLIMID [Suspect]
     Indication: MULTIPLE MYELOMA
     Dosage: 25 MILLIGRAM
     Route: 048
     Dates: start: 20080901
  2. K [Concomitant]
     Dosage: 20 MILLIEQUIVALENTS
     Route: 065
  3. VITAMIN B-12 [Concomitant]
     Route: 065
  4. PHENERGAN [Concomitant]
     Indication: NAUSEA
     Dosage: 25 MILLIGRAM
     Route: 065
  5. REVLIMID [Suspect]
     Dosage: 10 MILLIGRAM
     Route: 048
     Dates: start: 20081001, end: 20101201
  6. VYTORIN [Concomitant]
     Route: 065
  7. DIGOXIN [Concomitant]
     Dosage: .125 MILLIGRAM
     Route: 065
  8. DILAUDID [Concomitant]
     Dosage: 3 TABLET
     Route: 048
  9. REVLIMID [Suspect]
     Dosage: 10 MILLIGRAM
     Route: 048
     Dates: start: 20110201, end: 20110201
  10. INSULIN [Concomitant]
     Route: 065
     Dates: end: 20110201
  11. DILAUDID [Concomitant]
     Indication: BACK PAIN
  12. COUMADIN [Concomitant]
     Dosage: 2 MILLIGRAM
     Route: 065
  13. VITAMIN D [Concomitant]
     Route: 065
  14. COREG [Concomitant]
     Dosage: 6.5 MILLIGRAM
     Route: 065
  15. COUMADIN [Concomitant]
     Dosage: 4 MILLIGRAM
     Route: 065
  16. LASIX [Concomitant]
     Dosage: 40 MILLIGRAM
     Route: 065

REACTIONS (7)
  - OSTEOMYELITIS [None]
  - DEATH [None]
  - FALL [None]
  - RIB FRACTURE [None]
  - RESPIRATORY FAILURE [None]
  - JAW FRACTURE [None]
  - ASTHENIA [None]
